FAERS Safety Report 16000019 (Version 4)
Quarter: 2019Q2

REPORT INFORMATION
  Report Type: Spontaneous
  Country: US (occurrence: US)
  Receive Date: 20190225
  Receipt Date: 20190625
  Transmission Date: 20190711
  Serious: Yes (Hospitalization, Other)
  Sender: FDA-Public Use
  Company Number: US-PFIZER INC-2019080943

PATIENT
  Age: 60 Year
  Sex: Female

DRUGS (1)
  1. XELJANZ [Suspect]
     Active Substance: TOFACITINIB CITRATE
     Dosage: 5 MG, UNK
     Dates: start: 201901

REACTIONS (13)
  - Pneumonia [Unknown]
  - Chest pain [Unknown]
  - Weight fluctuation [Unknown]
  - Post procedural pulmonary embolism [Unknown]
  - Increased appetite [Unknown]
  - Malaise [Unknown]
  - Rib fracture [Unknown]
  - Amnesia [Unknown]
  - Skin abrasion [Unknown]
  - Pain [Unknown]
  - Weight increased [Unknown]
  - Constipation [Unknown]
  - Fall [Unknown]
